FAERS Safety Report 13018041 (Version 1)
Quarter: 2016Q4

REPORT INFORMATION
  Report Type: Spontaneous
  Country: US (occurrence: US)
  Receive Date: 20161212
  Receipt Date: 20161212
  Transmission Date: 20170207
  Serious: No
  Sender: FDA-Public Use
  Company Number: US-MISSION PHARMACAL COMPANY-1060683

PATIENT
  Age: 39 Year
  Sex: Male

DRUGS (3)
  1. BENADRYL [Concomitant]
     Active Substance: DIPHENHYDRAMINE HYDROCHLORIDE
     Route: 065
  2. THIOLA [Suspect]
     Active Substance: TIOPRONIN
     Indication: CYSTINOSIS
     Route: 065
     Dates: start: 20141108
  3. MUCINEX [Concomitant]
     Active Substance: GUAIFENESIN
     Route: 065

REACTIONS (8)
  - Nasal congestion [Unknown]
  - Increased bronchial secretion [Unknown]
  - Fluid intake reduced [None]
  - Malaise [None]
  - Drug dose omission [Unknown]
  - Feeling abnormal [None]
  - Vomiting [Recovered/Resolved]
  - Pyrexia [Recovered/Resolved]
